FAERS Safety Report 16139589 (Version 1)
Quarter: 2019Q2

REPORT INFORMATION
  Report Type: Spontaneous
  Country: FR (occurrence: FR)
  Receive Date: 20190401
  Receipt Date: 20190401
  Transmission Date: 20190711
  Serious: Yes (Hospitalization)
  Sender: FDA-Public Use
  Company Number: FR-ACCORD-115540

PATIENT
  Age: 41 Year
  Sex: Female
  Weight: 54.8 kg

DRUGS (9)
  1. SKENAN [Suspect]
     Active Substance: MORPHINE SULFATE
     Indication: PRODUCT USED FOR UNKNOWN INDICATION
     Dosage: 80 MG X2 /DAY
     Route: 065
  2. DUPHALAC [Suspect]
     Active Substance: LACTULOSE
     Indication: PRODUCT USED FOR UNKNOWN INDICATION
     Dosage: IF REQUIRED
     Route: 065
  3. ACTISKENAN [Suspect]
     Active Substance: MORPHINE SULFATE
     Indication: PRODUCT USED FOR UNKNOWN INDICATION
     Dosage: 4 PER DAY IF REQUIRED
     Route: 065
  4. ESOMEPRAZOLE/ESOMEPRAZOLE MAGNESIUM/ESOMEPRAZOLE SODIUM [Suspect]
     Active Substance: ESOMEPRAZOLE
     Indication: PRODUCT USED FOR UNKNOWN INDICATION
     Dosage: 20 MG PER DAY
     Route: 065
  5. PARACETAMOL [Suspect]
     Active Substance: ACETAMINOPHEN
     Indication: PRODUCT USED FOR UNKNOWN INDICATION
     Dosage: 4 GRAMS PER DAY
     Route: 065
  6. ANTIGONE [Suspect]
     Active Substance: DESOGESTREL
     Indication: ORAL CONTRACEPTION
     Dosage: 75 MICROGRAM
     Route: 048
     Dates: end: 20170831
  7. INSTANYL [Suspect]
     Active Substance: FENTANYL
     Indication: PRODUCT USED FOR UNKNOWN INDICATION
     Dosage: 200 MICROGRAMS PERDAY NASALLY
     Route: 045
  8. METHOTREXATE. [Suspect]
     Active Substance: METHOTREXATE
     Indication: NEOPLASM MALIGNANT
     Dosage: PATIENT RECEIVED 10 COURSES OF METHOTREXATE IV WEEKLY
     Route: 042
     Dates: start: 20170530, end: 20170801
  9. LEVOTHYROX [Suspect]
     Active Substance: LEVOTHYROXINE
     Indication: PRODUCT USED FOR UNKNOWN INDICATION
     Dosage: 150 MICROGRAMS PER DAY
     Route: 065

REACTIONS (1)
  - Jugular vein thrombosis [Unknown]

NARRATIVE: CASE EVENT DATE: 20170828
